FAERS Safety Report 7792422-6 (Version None)
Quarter: 2011Q4

REPORT INFORMATION
  Report Type: 
  Country: None (occurrence: None)
  Receive Date: 20111003
  Receipt Date: 20110926
  Transmission Date: 20120403
  Serious: Yes (Life-Threatening)
  Sender: FDA-Public Use
  Company Number: US-ELI_LILLY_AND_COMPANY-US201101005855

PATIENT
  Sex: Female
  Weight: 62.5 kg

DRUGS (7)
  1. MELATONIN [Concomitant]
     Indication: DEPRESSION
     Dates: start: 20101028
  2. HUMALOG [Suspect]
     Dates: start: 20110123
  3. HUMALOG [Suspect]
     Dosage: 0.85 D/F, UNK
     Dates: start: 20110123
  4. HUMALOG [Suspect]
     Indication: TYPE 1 DIABETES MELLITUS
     Dosage: 1 D/F, UNK
     Route: 058
     Dates: start: 20101011
  5. NUVARING [Concomitant]
     Indication: CONTRACEPTION
     Dates: start: 20050101
  6. HUMALOG [Suspect]
     Dosage: 0.85 D/F, UNK
     Dates: start: 20110123
  7. HUMALOG [Suspect]
     Dosage: 0.8 D/F, UNK
     Dates: start: 20110123

REACTIONS (1)
  - HYPOGLYCAEMIA [None]
